FAERS Safety Report 4769959-7 (Version None)
Quarter: 2005Q3

REPORT INFORMATION
  Report Type: 
  Country: None (occurrence: None)
  Receive Date: 20050913
  Receipt Date: 20050913
  Transmission Date: 20060218
  Serious: Yes (Other)
  Sender: FDA-Public Use
  Company Number: None

PATIENT
  Age: 67 Year
  Sex: Male

DRUGS (1)
  1. ADRIAMYCIN PFS [Suspect]

REACTIONS (4)
  - CHEST PAIN [None]
  - IMPLANT SITE EXTRAVASATION [None]
  - INJECTION SITE SWELLING [None]
  - LOCAL SWELLING [None]
